FAERS Safety Report 8967303 (Version 1)
Quarter: 2012Q4

REPORT INFORMATION
  Report Type: 
  Country: US (occurrence: US)
  Receive Date: 20121214
  Receipt Date: 20121214
  Transmission Date: 20130627
  Serious: No
  Sender: FDA-Public Use
  Company Number: US-GLAXOSMITHKLINE-A0984604A

PATIENT
  Age: 9 Year
  Sex: Male

DRUGS (12)
  1. FLONASE [Suspect]
     Indication: RHINITIS ALLERGIC
     Dosage: 1SPR Per day
     Route: 045
     Dates: start: 2010, end: 201206
  2. TACROLIMUS [Concomitant]
  3. MYCOPHENOLATE [Concomitant]
  4. UNSPECIFIED MEDICATION [Concomitant]
  5. PRAVATIN [Concomitant]
  6. ALBUTEROL [Concomitant]
  7. FLOVENT [Concomitant]
  8. CLARITIN [Concomitant]
  9. SINGULAIR [Concomitant]
  10. ASPIRIN [Concomitant]
  11. ZANTAC [Concomitant]
  12. VITAMINS [Concomitant]

REACTIONS (5)
  - Nasal discomfort [Recovered/Resolved]
  - Scab [Recovered/Resolved]
  - Haemoptysis [Recovered/Resolved]
  - Nasal ulcer [Recovered/Resolved]
  - Nasal discomfort [Recovered/Resolved]
